FAERS Safety Report 5674076-8 (Version None)
Quarter: 2008Q2

REPORT INFORMATION
  Report Type: 
  Country: None (occurrence: None)
  Receive Date: 20080228
  Receipt Date: 20070122
  Transmission Date: 20081010
  Serious: Yes (Disabling)
  Sender: FDA-Public Use
  Company Number: 002#2#2007-00018

PATIENT
  Sex: Female

DRUGS (1)
  1. REGLAN [Suspect]
     Dates: start: 19831207, end: 20060323

REACTIONS (1)
  - TARDIVE DYSKINESIA [None]
